FAERS Safety Report 11220218 (Version 1)
Quarter: 2015Q2

REPORT INFORMATION
  Report Type: Report from Study
  Country: US (occurrence: US)
  Receive Date: 20150625
  Receipt Date: 20150625
  Transmission Date: 20150821
  Serious: No
  Sender: FDA-Public Use
  Company Number: US-EXELIXIS-CABO-15005446

PATIENT
  Age: 79 Year
  Sex: Male

DRUGS (1)
  1. CABOZANTINIB [Suspect]
     Active Substance: CABOZANTINIB
     Indication: SALIVARY GLAND CANCER STAGE 0
     Dosage: 100 MG, QD
     Route: 048
     Dates: start: 20150430

REACTIONS (5)
  - Aphagia [Unknown]
  - Off label use [Unknown]
  - Dysphagia [Unknown]
  - Dehydration [Recovered/Resolved]
  - Oral infection [Unknown]

NARRATIVE: CASE EVENT DATE: 201505
